FAERS Safety Report 16913352 (Version 1)
Quarter: 2019Q4

REPORT INFORMATION
  Report Type: Spontaneous
  Country: PT (occurrence: PT)
  Receive Date: 20191014
  Receipt Date: 20191014
  Transmission Date: 20200122
  Serious: Yes (Other)
  Sender: FDA-Public Use
  Company Number: PT-ACCORD-156021

PATIENT
  Age: 27 Year
  Sex: Female

DRUGS (9)
  1. METOCLOPRAMIDE. [Concomitant]
     Active Substance: METOCLOPRAMIDE
     Indication: PREMEDICATION
  2. ONDANSETRON [Concomitant]
     Active Substance: ONDANSETRON
     Indication: PREMEDICATION
  3. CISPLATIN. [Suspect]
     Active Substance: CISPLATIN
     Indication: AESTHESIONEUROBLASTOMA
     Dosage: ON DAY 1?100 MG/M2 AFTER DELIVERY
  4. FOLIC ACID. [Concomitant]
     Active Substance: FOLIC ACID
  5. IODINE. [Concomitant]
     Active Substance: IODINE
  6. ETOPOSIDE. [Suspect]
     Active Substance: ETOPOSIDE
     Indication: AESTHESIONEUROBLASTOMA
     Dosage: ON DAYS 1 TO 3, CYCLES EVERY 21 DAYS
  7. HYDROCORTISONE. [Concomitant]
     Active Substance: HYDROCORTISONE
     Indication: PREMEDICATION
  8. IRON [Concomitant]
     Active Substance: IRON
     Route: 048
  9. ENOXAPARIN/ENOXAPARIN SODIUM [Concomitant]
     Indication: PROPHYLAXIS

REACTIONS (5)
  - Anaemia [Recovered/Resolved]
  - Off label use [Unknown]
  - Maternal exposure during pregnancy [Unknown]
  - Nausea [Recovered/Resolved]
  - Vomiting [Recovered/Resolved]
